FAERS Safety Report 22123709 (Version 2)
Quarter: 2024Q2

REPORT INFORMATION
  Report Type: Spontaneous
  Country: US (occurrence: US)
  Receive Date: 20230322
  Receipt Date: 20240415
  Transmission Date: 20240715
  Serious: No
  Sender: FDA-Public Use
  Company Number: US-ABBVIE-4318017

PATIENT
  Age: 47 Year
  Sex: Female
  Weight: 45 kg

DRUGS (4)
  1. HUMIRA [Suspect]
     Active Substance: ADALIMUMAB
     Indication: Colitis ulcerative
     Dosage: FORM STRENGTH: 40 MILLIGRAM
     Route: 058
     Dates: start: 201709, end: 201901
  2. HUMIRA [Suspect]
     Active Substance: ADALIMUMAB
     Dosage: FORM STRENGTH: 40 MILLIGRAM
     Route: 058
     Dates: start: 2020, end: 2021
  3. LIALDA [Concomitant]
     Active Substance: MESALAMINE
     Indication: Condition aggravated
  4. UCERIS [Concomitant]
     Active Substance: BUDESONIDE
     Indication: Condition aggravated

REACTIONS (3)
  - Drug level decreased [Unknown]
  - Colitis ulcerative [Not Recovered/Not Resolved]
  - Drug specific antibody absent [Unknown]

NARRATIVE: CASE EVENT DATE: 20220801
